FAERS Safety Report 9100162 (Version 4)
Quarter: 2014Q3

REPORT INFORMATION
  Report Type: Spontaneous
  Country: US (occurrence: US)
  Receive Date: 20130215
  Receipt Date: 20140828
  Transmission Date: 20150326
  Serious: Yes (Hospitalization, Disabling, Other)
  Sender: FDA-Public Use
  Company Number: US-009507513-1302USA006634

PATIENT
  Sex: Female
  Weight: 122.45 kg

DRUGS (2)
  1. NUVARING [Suspect]
     Active Substance: ETHINYL ESTRADIOL\ETONOGESTREL
     Indication: MIGRAINE
  2. NUVARING [Suspect]
     Active Substance: ETHINYL ESTRADIOL\ETONOGESTREL
     Indication: CONTRACEPTION
     Dosage: UNK
     Route: 067
     Dates: start: 2003, end: 201202

REACTIONS (32)
  - Skin cancer [Unknown]
  - Urinary tract infection [Unknown]
  - Pulmonary embolism [Unknown]
  - Anxiety [Unknown]
  - Vitamin D deficiency [Unknown]
  - Inguinal mass [Unknown]
  - Fibromyalgia [Unknown]
  - Gastrooesophageal reflux disease [Unknown]
  - Cardiomegaly [Unknown]
  - Blister [Unknown]
  - Sinusitis [Unknown]
  - Meniscus injury [Unknown]
  - Off label use [Recovered/Resolved]
  - Maternal exposure before pregnancy [Unknown]
  - Rib fracture [Recovering/Resolving]
  - Iron deficiency anaemia [Recovered/Resolved]
  - Systemic lupus erythematosus [Not Recovered/Not Resolved]
  - Dysuria [Unknown]
  - Hypotension [Unknown]
  - Menorrhagia [Unknown]
  - Abortion spontaneous [Recovered/Resolved]
  - Hypertension [Unknown]
  - Vitamin B12 deficiency [Unknown]
  - Spinal laminectomy [Unknown]
  - Bronchitis [Unknown]
  - Pericarditis [Unknown]
  - Arthritis [Unknown]
  - Rhinitis allergic [Unknown]
  - Cough [Unknown]
  - Impetigo [Unknown]
  - Depression [Unknown]
  - Fungal infection [Unknown]

NARRATIVE: CASE EVENT DATE: 2003
